FAERS Safety Report 6849421-8 (Version None)
Quarter: 2010Q3

REPORT INFORMATION
  Report Type: 
  Country: None (occurrence: None)
  Receive Date: 20100716
  Receipt Date: 20070928
  Transmission Date: 20110219
  Serious: No
  Sender: FDA-Public Use
  Company Number: US-PFIZER INC-2007083161

PATIENT
  Sex: Female
  Weight: 84.1 kg

DRUGS (17)
  1. CHANTIX [Suspect]
     Indication: SMOKING CESSATION THERAPY
     Dates: start: 20070920
  2. PARA-SELTZER [Concomitant]
  3. METFORMIN HCL [Concomitant]
  4. SYNTHROID [Concomitant]
  5. LYRICA [Concomitant]
  6. SIMVASTATIN [Concomitant]
  7. CLONAZEPAM [Concomitant]
     Indication: PANIC ATTACK
  8. POTASSIUM CHLORATE [Concomitant]
  9. LEVOTHYROXINE SODIUM [Concomitant]
  10. ALTACE [Concomitant]
  11. FUROSEMIDE [Concomitant]
     Indication: SWELLING
  12. FENTANYL [Concomitant]
  13. OXYCODONE HCL [Concomitant]
  14. MORPHINE [Concomitant]
  15. NORTRIPTYLINE [Concomitant]
     Indication: SLEEP DISORDER
  16. ACIPHEX [Concomitant]
     Indication: HIATUS HERNIA
  17. CYMBALTA [Concomitant]
     Indication: ANTIDEPRESSANT THERAPY

REACTIONS (4)
  - DRUG INEFFECTIVE [None]
  - HEADACHE [None]
  - NECK PAIN [None]
  - POOR QUALITY SLEEP [None]
